FAERS Safety Report 11640362 (Version 1)
Quarter: 2015Q4

REPORT INFORMATION
  Report Type: Spontaneous
  Country: US (occurrence: None)
  Receive Date: 20151016
  Receipt Date: 20151016
  Transmission Date: 20160304
  Serious: Yes (Other)
  Sender: FDA-Public Use
  Company Number: None

PATIENT
  Age: 65 Year
  Sex: Male

DRUGS (3)
  1. LANTUS [Concomitant]
     Active Substance: INSULIN GLARGINE
  2. METFORMIN [Suspect]
     Active Substance: METFORMIN HYDROCHLORIDE
     Indication: DIABETES MELLITUS
     Dosage: 2   BID  ORAL?DATES OF USE (DURATION): WEEK
     Route: 048
  3. NOVOLIN [Concomitant]
     Active Substance: INSULIN HUMAN

REACTIONS (5)
  - Diarrhoea [None]
  - Product substitution issue [None]
  - Product quality issue [None]
  - Reaction to drug excipients [None]
  - Headache [None]

NARRATIVE: CASE EVENT DATE: 20151015
